FAERS Safety Report 8378864-9 (Version None)
Quarter: 2012Q2

REPORT INFORMATION
  Report Type: 
  Country: None (occurrence: None)
  Receive Date: 20120523
  Receipt Date: 20120510
  Transmission Date: 20120825
  Serious: Yes (Other)
  Sender: FDA-Public Use
  Company Number: TR-RANBAXY-2012RR-56427

PATIENT
  Age: 33 Year
  Sex: Male

DRUGS (5)
  1. ATORVASTATIN CALCIUM [Suspect]
     Indication: HYPERLIPIDAEMIA
     Dosage: UNK
     Route: 065
  2. PRAVASTATIN [Suspect]
     Indication: HYPERLIPIDAEMIA
     Dosage: UNK
     Route: 065
  3. EZETIMIBE [Suspect]
     Indication: HYPERLIPIDAEMIA
     Dosage: UNK
     Route: 065
  4. FENOFIBRATE [Suspect]
     Indication: HYPERLIPIDAEMIA
     Dosage: UNK
     Route: 065
  5. ROSUVASTATIN [Suspect]
     Indication: HYPERLIPIDAEMIA
     Dosage: UNK
     Route: 065

REACTIONS (7)
  - IMPULSE-CONTROL DISORDER [None]
  - DEPRESSIVE SYMPTOM [None]
  - SLEEP DISORDER [None]
  - HEADACHE [None]
  - HALLUCINATION, VISUAL [None]
  - AMNESIA [None]
  - NIGHTMARE [None]
